FAERS Safety Report 6931720-2 (Version None)
Quarter: 2010Q3

REPORT INFORMATION
  Report Type: 
  Country: None (occurrence: None)
  Receive Date: 20100812
  Receipt Date: 20100402
  Transmission Date: 20110219
  Serious: No
  Sender: FDA-Public Use
  Company Number: 2009-01076

PATIENT
  Sex: Male
  Weight: 81.6475 kg

DRUGS (1)
  1. ZICAM COLD REMEDY NASAL GEL [Suspect]
     Indication: MULTIPLE ALLERGIES
     Dosage: QID X 2 DAYS
     Dates: start: 20090301, end: 20090303

REACTIONS (2)
  - AGEUSIA [None]
  - ANOSMIA [None]
